FAERS Safety Report 11626438 (Version 1)
Quarter: 2015Q4

REPORT INFORMATION
  Report Type: Spontaneous
  Country: US (occurrence: US)
  Receive Date: 20151013
  Receipt Date: 20151013
  Transmission Date: 20160304
  Serious: No
  Sender: FDA-Public Use
  Company Number: US-ROCHE-1586682

PATIENT
  Age: 66 Year
  Sex: Male

DRUGS (1)
  1. VEMURAFENIB [Suspect]
     Active Substance: VEMURAFENIB
     Indication: MALIGNANT MELANOMA
     Route: 065

REACTIONS (7)
  - Fatigue [Recovering/Resolving]
  - Dysgeusia [Unknown]
  - Keratosis pilaris [Recovering/Resolving]
  - Arthralgia [Recovering/Resolving]
  - Decreased appetite [Unknown]
  - Vitamin C deficiency [Recovered/Resolved]
  - Xerosis [Unknown]
